FAERS Safety Report 9618014 (Version 1)
Quarter: 2013Q4

REPORT INFORMATION
  Report Type: Report from Study
  Country: US (occurrence: US)
  Receive Date: 20131011
  Receipt Date: 20131011
  Transmission Date: 20140711
  Serious: Yes (Hospitalization)
  Sender: FDA-Public Use
  Company Number: US-EXELIXIS-XL18413003393

PATIENT
  Age: 51 Year
  Sex: Male
  Weight: 88.2 kg

DRUGS (8)
  1. XL184 [Suspect]
     Indication: NEUROENDOCRINE TUMOUR
     Dosage: 60 MG, QD
     Route: 048
     Dates: start: 20130905, end: 20130929
  2. INSULIN ASPART [Concomitant]
     Dosage: UNK
  3. ASPIRIN [Concomitant]
  4. CELEXA [Concomitant]
  5. CHOLECALCIFEROL [Concomitant]
  6. CREON [Concomitant]
  7. MULTIVITAMIN [Concomitant]
  8. SIMVASTATIN [Concomitant]

REACTIONS (1)
  - Cardiomyopathy [Recovering/Resolving]
